FAERS Safety Report 6983918-5 (Version None)
Quarter: 2010Q3

REPORT INFORMATION
  Report Type: 
  Country: None (occurrence: None)
  Receive Date: 20100914
  Receipt Date: 20090507
  Transmission Date: 20110219
  Serious: No
  Sender: FDA-Public Use
  Company Number: US-WYE-H08960209

PATIENT
  Sex: Female
  Weight: 90.8 kg

DRUGS (5)
  1. ADVIL LIQUI-GELS [Suspect]
     Indication: ARTHRITIS
     Dosage: 1 LIQUI-GEL AS NEEDED
     Route: 048
     Dates: end: 20081201
  2. ADVIL LIQUI-GELS [Suspect]
     Indication: INFLAMMATION
  3. CELEBREX [Suspect]
     Dosage: UNKNOWN
     Route: 048
  4. IBUPROFEN [Suspect]
  5. LISINOPRIL [Concomitant]

REACTIONS (6)
  - CONDITION AGGRAVATED [None]
  - ERYTHEMA [None]
  - HAEMATOCHEZIA [None]
  - HYPERTENSION [None]
  - RECTAL HAEMORRHAGE [None]
  - THROAT IRRITATION [None]
